FAERS Safety Report 5245127-X (Version None)
Quarter: 2007Q1

REPORT INFORMATION
  Report Type: 
  Country: None (occurrence: None)
  Receive Date: 20070223
  Receipt Date: 20070214
  Transmission Date: 20070707
  Serious: Yes (Death, Hospitalization, Other)
  Sender: FDA-Public Use
  Company Number: US-JNJFOC-20060405070

PATIENT
  Sex: Male
  Weight: 77.11 kg

DRUGS (5)
  1. REMICADE [Suspect]
     Route: 042
  2. REMICADE [Suspect]
     Indication: CROHN'S DISEASE
     Route: 042
  3. REMICADE [Suspect]
     Indication: COLITIS ULCERATIVE
     Dosage: 5 MG/KG AT WEEKS 0, 2, 6, THEN EVERY 8 WEEKS
     Route: 042
  4. LEVBID [Concomitant]
  5. ASACOL [Concomitant]

REACTIONS (7)
  - ACUTE RESPIRATORY DISTRESS SYNDROME [None]
  - CARDIAC FAILURE CONGESTIVE [None]
  - DYSPNOEA [None]
  - HAEMOLYTIC ANAEMIA [None]
  - HERPES ZOSTER [None]
  - MUSCULOSKELETAL CHEST PAIN [None]
  - RENAL FAILURE ACUTE [None]
